APPROVED DRUG PRODUCT: PASKALIUM
Active Ingredient: POTASSIUM AMINOSALICYLATE
Strength: 1GM
Dosage Form/Route: TABLET;ORAL
Application: N009395 | Product #003
Applicant: GLENWOOD INC
Approved: Approved Prior to Jan 1, 1982 | RLD: No | RS: No | Type: DISCN